FAERS Safety Report 4747916-4 (Version None)
Quarter: 2005Q3

REPORT INFORMATION
  Report Type: 
  Country: None (occurrence: None)
  Receive Date: 20050816
  Receipt Date: 20050803
  Transmission Date: 20060218
  Serious: Yes (Other)
  Sender: FDA-Public Use
  Company Number: 1515-101

PATIENT
  Age: 3 Year
  Sex: Male
  Weight: 15 kg

DRUGS (1)
  1. VENOFER [Suspect]
     Dosage: 12.1ML DILUTED WITH 0.9%

REACTIONS (5)
  - ABDOMINAL PAIN [None]
  - HEPATOCELLULAR DAMAGE [None]
  - INFUSION RELATED REACTION [None]
  - NAUSEA [None]
  - VOMITING [None]
